FAERS Safety Report 8614639-0 (Version None)
Quarter: 2012Q3

REPORT INFORMATION
  Report Type: 
  Country: None (occurrence: None)
  Receive Date: 20120823
  Receipt Date: 20120821
  Transmission Date: 20120928
  Serious: Yes (Life-Threatening)
  Sender: FDA-Public Use
  Company Number: PHHY2012JP072512

PATIENT
  Age: 78 Year
  Sex: Female

DRUGS (3)
  1. FAMVIR [Suspect]
     Indication: HERPES ZOSTER
     Dosage: 500 MG, TID
     Route: 048
     Dates: start: 20120704, end: 20120709
  2. LYRICA [Suspect]
     Indication: HERPES ZOSTER
     Dosage: UNK
     Dates: start: 20120704, end: 20120714
  3. LOBU [Suspect]
     Indication: HERPES ZOSTER
     Dosage: UNK
     Dates: start: 20120704, end: 20120714

REACTIONS (5)
  - OEDEMA [None]
  - LIVER INJURY [None]
  - ENCEPHALOPATHY [None]
  - LIVER DISORDER [None]
  - DECREASED APPETITE [None]
